FAERS Safety Report 13347185 (Version 1)
Quarter: 2017Q1

REPORT INFORMATION
  Report Type: Spontaneous
  Country: US (occurrence: US)
  Receive Date: 20170317
  Receipt Date: 20170317
  Transmission Date: 20170428
  Serious: No
  Sender: FDA-Public Use
  Company Number: US-PERRIGO-16US019114

PATIENT
  Age: 46 Year
  Sex: Female

DRUGS (2)
  1. CLINDAMYCIN AND BENZOYL PEROXIDE [Suspect]
     Active Substance: BENZOYL PEROXIDE\CLINDAMYCIN PHOSPHATE
     Indication: ACNE
     Dosage: SMALL AMOUNT, QHS
     Route: 061
     Dates: start: 20160805, end: 20160807
  2. CLINDAMYCIN AND BENZOYL PEROXIDE [Suspect]
     Active Substance: BENZOYL PEROXIDE\CLINDAMYCIN PHOSPHATE
     Dosage: UNK
     Route: 061
     Dates: start: 20160809, end: 20160811

REACTIONS (2)
  - Inappropriate schedule of drug administration [Recovered/Resolved]
  - Application site discomfort [Recovered/Resolved]

NARRATIVE: CASE EVENT DATE: 20160805
